FAERS Safety Report 23708665 (Version 1)
Quarter: 2024Q2

REPORT INFORMATION
  Report Type: Report from Study
  Country: US (occurrence: US)
  Receive Date: 20240404
  Receipt Date: 20240404
  Transmission Date: 20240715
  Serious: No
  Sender: FDA-Public Use
  Company Number: US-TG THERAPEUTICS INC.-TGT003297

PATIENT
  Age: 36 Year
  Sex: Female

DRUGS (3)
  1. UBLITUXIMAB [Suspect]
     Active Substance: UBLITUXIMAB
     Indication: Multiple sclerosis
     Dosage: UNK
     Route: 042
     Dates: start: 20230718, end: 20230718
  2. UBLITUXIMAB [Suspect]
     Active Substance: UBLITUXIMAB
     Dosage: UNK
     Route: 042
     Dates: start: 20230801, end: 20230801
  3. UBLITUXIMAB [Suspect]
     Active Substance: UBLITUXIMAB
     Dosage: UNK
     Route: 042
     Dates: start: 20240201, end: 20240201

REACTIONS (5)
  - Chest discomfort [Recovering/Resolving]
  - Cough [Recovering/Resolving]
  - Stress [Recovering/Resolving]
  - Nasopharyngitis [Recovering/Resolving]
  - Lower respiratory tract infection [Recovering/Resolving]

NARRATIVE: CASE EVENT DATE: 20240127
